FAERS Safety Report 25011851 (Version 6)
Quarter: 2025Q4

REPORT INFORMATION
  Report Type: Report from Study
  Country: CA (occurrence: CA)
  Receive Date: 20250226
  Receipt Date: 20251110
  Transmission Date: 20260117
  Serious: Yes (Other)
  Sender: JOHNSON AND JOHNSON
  Company Number: CA-JNJFOC-20241266116

PATIENT
  Age: 44 Year
  Sex: Female

DRUGS (7)
  1. SIMPONI [Suspect]
     Active Substance: GOLIMUMAB
     Indication: Axial spondyloarthritis
     Route: 058
  2. SIMPONI [Suspect]
     Active Substance: GOLIMUMAB
     Indication: Ankylosing spondylitis
     Route: 058
  3. SIMPONI [Suspect]
     Active Substance: GOLIMUMAB
     Route: 058
  4. MELOXICAM [Concomitant]
     Active Substance: MELOXICAM
     Indication: Product used for unknown indication
  5. DULOXETINE [Concomitant]
     Active Substance: DULOXETINE
     Indication: Product used for unknown indication
  6. PANTOPRAZOLE SODIUM [Concomitant]
     Active Substance: PANTOPRAZOLE SODIUM
     Indication: Product used for unknown indication
  7. MAGNESIUM [Concomitant]
     Active Substance: MAGNESIUM
     Indication: Product used for unknown indication
     Dosage: DAILY

REACTIONS (26)
  - Postmenopausal haemorrhage [Unknown]
  - Axial spondyloarthritis [Not Recovered/Not Resolved]
  - Raynaud^s phenomenon [Unknown]
  - Fibromyalgia [Unknown]
  - Attention deficit hyperactivity disorder [Unknown]
  - Vision blurred [Unknown]
  - Photosensitivity reaction [Unknown]
  - Sacral pain [Unknown]
  - Presyncope [Unknown]
  - Abdominal pain [Unknown]
  - Diarrhoea [Unknown]
  - Fatigue [Unknown]
  - Impetigo [Recovering/Resolving]
  - Gastrointestinal disorder [Not Recovered/Not Resolved]
  - Brain fog [Unknown]
  - Dry mouth [Unknown]
  - Vomiting [Unknown]
  - Autonomic nervous system imbalance [Unknown]
  - Limb injury [Recovered/Resolved]
  - Scratch [Recovering/Resolving]
  - Rash [Unknown]
  - Impaired healing [Unknown]
  - Menopausal acne [Unknown]
  - Therapeutic response shortened [Unknown]
  - Product dose omission issue [Unknown]
  - Product storage error [Unknown]

NARRATIVE: CASE EVENT DATE: 20241211
